FAERS Safety Report 24154190 (Version 1)
Quarter: 2024Q3

REPORT INFORMATION
  Report Type: Report from Study
  Country: US (occurrence: US)
  Receive Date: 20240730
  Receipt Date: 20240730
  Transmission Date: 20241016
  Serious: Yes (Other)
  Sender: JOHNSON AND JOHNSON
  Company Number: US-JNJFOC-20240768273

PATIENT
  Age: 62 Year
  Sex: Female

DRUGS (3)
  1. SPRAVATO [Suspect]
     Active Substance: ESKETAMINE
     Indication: Depression
     Dosage: 56 MG, TOTAL OF 4 DOSES
     Dates: start: 20240627, end: 20240711
  2. SPRAVATO [Suspect]
     Active Substance: ESKETAMINE
     Dosage: 84 MG, TOTAL OF 2 DOSES
     Dates: start: 20240716, end: 20240718
  3. SPRAVATO [Suspect]
     Active Substance: ESKETAMINE
     Dosage: MOST RECENT DOSE
     Dates: start: 20240723

REACTIONS (1)
  - Feeling abnormal [Unknown]

NARRATIVE: CASE EVENT DATE: 20240723
